FAERS Safety Report 11588521 (Version 1)
Quarter: 2015Q4

REPORT INFORMATION
  Report Type: Report from Study
  Country: US (occurrence: US)
  Receive Date: 20151002
  Receipt Date: 20151002
  Transmission Date: 20160304
  Serious: Yes (Hospitalization, Other)
  Sender: FDA-Public Use
  Company Number: US-ABBVIE-15P-163-1471551-00

PATIENT
  Sex: Male

DRUGS (2)
  1. HUMIRA [Suspect]
     Active Substance: ADALIMUMAB
     Route: 063
  2. HUMIRA [Suspect]
     Active Substance: ADALIMUMAB
     Indication: MATERNAL EXPOSURE TIMING UNSPECIFIED
     Route: 064

REACTIONS (11)
  - Asthma [Not Recovered/Not Resolved]
  - Exposure during breast feeding [Unknown]
  - Respiratory syncytial virus infection [Recovered/Resolved]
  - Blood glucose decreased [Recovered/Resolved]
  - Foetal exposure during pregnancy [Unknown]
  - Obstructed labour [Recovered/Resolved]
  - Jaundice [Recovered/Resolved]
  - Nasopharyngitis [Not Recovered/Not Resolved]
  - Large for dates baby [Recovered/Resolved]
  - Premature baby [Not Recovered/Not Resolved]
  - Ear infection [Not Recovered/Not Resolved]

NARRATIVE: CASE EVENT DATE: 201311
